FAERS Safety Report 9123314 (Version 1)
Quarter: 2013Q1

REPORT INFORMATION
  Report Type: Spontaneous
  Country: US (occurrence: US)
  Receive Date: 20130115
  Receipt Date: 20130115
  Transmission Date: 20140127
  Serious: Yes (Life-Threatening, Other)
  Sender: FDA-Public Use
  Company Number: US-009507513-1301USA003345

PATIENT
  Age: 69 Year
  Sex: Female

DRUGS (15)
  1. SINGULAIR [Suspect]
     Indication: ASTHMA
  2. PREDNISONE [Suspect]
     Route: 048
  3. FENOFIBRATE [Suspect]
  4. XOLAIR [Suspect]
     Indication: PRODUCT USED FOR UNKNOWN INDICATION
     Route: 058
  5. BRICANYL [Suspect]
  6. PANTOPRAZOLE SODIUM [Suspect]
  7. SYMBICORT [Suspect]
  8. PROTELOS [Suspect]
     Indication: OSTEOPOROSIS
  9. DESLORATADINE [Suspect]
  10. ALDACTONE [Suspect]
  11. ATROVENT [Suspect]
  12. DEDROGYL [Suspect]
  13. CACIT VITAMINE D3 [Suspect]
  14. UTEPLEX [Suspect]
  15. ACETAMINOPHEN [Suspect]

REACTIONS (4)
  - Pulmonary tuberculosis [Unknown]
  - Pancoast^s syndrome [Unknown]
  - Squamous cell carcinoma of lung [Unknown]
  - Drug ineffective [Unknown]
